FAERS Safety Report 6814093-5 (Version None)
Quarter: 2010Q3

REPORT INFORMATION
  Report Type: 
  Country: None (occurrence: None)
  Receive Date: 20100702
  Receipt Date: 20090918
  Transmission Date: 20110219
  Serious: No
  Sender: FDA-Public Use
  Company Number: A0808062A

PATIENT
  Age: 74 Year
  Sex: Female

DRUGS (9)
  1. ADVAIR DISKUS 100/50 [Suspect]
     Indication: ASTHMA
     Dosage: 2PUFF TWICE PER DAY
     Route: 055
     Dates: start: 20080101
  2. UNSPECIFIED MEDICATION [Concomitant]
  3. FLUTICASONE PROPIONATE [Concomitant]
  4. THYROID MEDICATION [Concomitant]
  5. VITAMINS [Concomitant]
  6. VITAMIN B-12 [Concomitant]
  7. CALCIUM CARBONATE [Concomitant]
  8. CHOLESTYRAMINE [Concomitant]
  9. UNSPECIFIED MEDICATION [Concomitant]

REACTIONS (5)
  - ALOPECIA [None]
  - BURNING SENSATION [None]
  - OROPHARYNGEAL DISCOMFORT [None]
  - PRURITUS [None]
  - SKIN DISORDER [None]
